FAERS Safety Report 4616622-9 (Version None)
Quarter: 2005Q1

REPORT INFORMATION
  Report Type: 
  Country: None (occurrence: None)
  Receive Date: 20050318
  Receipt Date: 20050310
  Transmission Date: 20050727
  Serious: Yes (Other)
  Sender: FDA-Public Use
  Company Number: 2005-03-0837

PATIENT
  Sex: Female

DRUGS (3)
  1. PEG-INTRON [Suspect]
     Indication: HEPATITIS C
     Dates: end: 20020101
  2. RIBAVIRIN [Suspect]
     Indication: HEPATITIS C
     Dosage: ORAL
     Route: 048
     Dates: end: 20020101
  3. METHADONE HCL [Suspect]
     Indication: PAIN

REACTIONS (7)
  - BRADYCARDIA [None]
  - COMA [None]
  - CONVULSION [None]
  - FIBROMYALGIA [None]
  - MIGRAINE [None]
  - PORTAL HYPERTENSION [None]
  - SPEECH DISORDER [None]
